FAERS Safety Report 8213337-5 (Version None)
Quarter: 2012Q1

REPORT INFORMATION
  Report Type: 
  Country: None (occurrence: None)
  Receive Date: 20120315
  Receipt Date: 20120312
  Transmission Date: 20120608
  Serious: No
  Sender: FDA-Public Use
  Company Number: US-PFIZER INC-2012065540

PATIENT
  Sex: Male

DRUGS (4)
  1. GUANFACINE [Concomitant]
     Dosage: 1 MG, UNK
     Route: 048
  2. EPIPEN [Concomitant]
     Dosage: 0.15 MG, UNK
     Route: 058
  3. STRATTERA [Concomitant]
     Dosage: 10 MG, UNK
     Route: 048
  4. GENOTROPIN [Suspect]
     Indication: GROWTH HORMONE DEFICIENCY
     Dosage: 1.8 MG, 1X/DAY
     Route: 058

REACTIONS (1)
  - INJECTION SITE PAIN [None]
